FAERS Safety Report 17534910 (Version 1)
Quarter: 2020Q1

REPORT INFORMATION
  Report Type: Spontaneous
  Country: NL (occurrence: IT)
  Receive Date: 20200312
  Receipt Date: 20200312
  Transmission Date: 20200409
  Serious: Yes (Other)
  Sender: FDA-Public Use
  Company Number: IT-FRESENIUS KABI-FK202002323

PATIENT
  Age: 82 Year
  Sex: Male
  Weight: 85 kg

DRUGS (1)
  1. SODIUM CHLORIDE (MANUFACTURER UNKNOWN) [Suspect]
     Active Substance: SODIUM CHLORIDE
     Indication: PRODUCT USED FOR UNKNOWN INDICATION
     Dosage: 60 MEQ AS NECESSARY??ADDITIONAL INFORMATION ON DRUG (FREE TEXT): ABUSE / MISUSE
     Route: 065

REACTIONS (1)
  - Tachyarrhythmia [Recovered/Resolved]

NARRATIVE: CASE EVENT DATE: 20200221
